FAERS Safety Report 5260821-2 (Version None)
Quarter: 2007Q1

REPORT INFORMATION
  Report Type: 
  Country: None (occurrence: None)
  Receive Date: 20070309
  Receipt Date: 20070302
  Transmission Date: 20070707
  Serious: Yes (Death, Other)
  Sender: FDA-Public Use
  Company Number: DE-BRISTOL-MYERS SQUIBB COMPANY-13694054

PATIENT
  Age: 2 Year
  Sex: Female

DRUGS (2)
  1. METHOTREXATE [Suspect]
     Indication: MEDULLOBLASTOMA
     Route: 037
  2. RADIOTHERAPY [Concomitant]
     Indication: MEDULLOBLASTOMA

REACTIONS (1)
  - GLIOMA [None]
